FAERS Safety Report 8405699 (Version 2)
Quarter: 2012Q4

REPORT INFORMATION
  Report Type: 
  Country: US (occurrence: US)
  Receive Date: 20120214
  Receipt Date: 20121220
  Transmission Date: 20130627
  Serious: Yes (Congenital Anomaly, Other)
  Sender: FDA-Public Use
  Company Number: US-PFIZER INC-2012036837

PATIENT
  Sex: Male

DRUGS (8)
  1. ZOLOFT [Suspect]
     Indication: DEPRESSION
     Dosage: UNK
     Route: 064
     Dates: start: 2003, end: 2005
  2. LEVOXYL [Concomitant]
     Dosage: UNK
     Route: 064
  3. PRENATAL VITAMINS [Concomitant]
     Dosage: UNK
     Route: 064
  4. BACLOFEN [Concomitant]
     Dosage: UNK
     Route: 064
  5. KLONOPIN [Concomitant]
     Dosage: UNK
     Route: 064
  6. DITROPAN [Concomitant]
     Dosage: UNK
     Route: 064
  7. MACRODANTIN [Concomitant]
     Dosage: UNK
     Route: 064
  8. INSULIN [Concomitant]
     Dosage: UNK
     Route: 064

REACTIONS (6)
  - Maternal exposure timing unspecified [Unknown]
  - Right atrial dilatation [Unknown]
  - Congenital pulmonary hypertension [Unknown]
  - Cardiac failure [Unknown]
  - Atrial septal defect [Unknown]
  - Dilatation ventricular [Unknown]
